FAERS Safety Report 5837551-9 (Version None)
Quarter: 2008Q3

REPORT INFORMATION
  Report Type: 
  Country: None (occurrence: None)
  Receive Date: 20080807
  Receipt Date: 20080726
  Transmission Date: 20090109
  Serious: Yes (Other)
  Sender: FDA-Public Use
  Company Number: US-PFIZER INC-2008063696

PATIENT
  Sex: Female
  Weight: 73.6 kg

DRUGS (16)
  1. CHANTIX [Suspect]
     Indication: SMOKING CESSATION THERAPY
  2. NEURONTIN [Concomitant]
  3. SYNTHROID [Concomitant]
  4. MONTELUKAST SODIUM [Concomitant]
  5. CELEBREX [Concomitant]
  6. OSCAL [Concomitant]
  7. ZYRTEC [Concomitant]
  8. NEXIUM [Concomitant]
  9. ZOCOR [Concomitant]
  10. ADVAIR DISKUS 100/50 [Concomitant]
  11. SPIRIVA [Concomitant]
  12. FLONASE [Concomitant]
  13. SURFAK [Concomitant]
  14. ACTONEL [Concomitant]
  15. LOVAZA [Concomitant]
  16. ALLEGRA [Concomitant]

REACTIONS (2)
  - ANXIETY [None]
  - PANIC ATTACK [None]
